FAERS Safety Report 6794169-1 (Version None)
Quarter: 2010Q2

REPORT INFORMATION
  Report Type: 
  Country: None (occurrence: None)
  Receive Date: 20100624
  Receipt Date: 20100215
  Transmission Date: 20101027
  Serious: Yes (Hospitalization)
  Sender: FDA-Public Use
  Company Number: DE-PFIZER INC-2010019342

PATIENT
  Sex: Female

DRUGS (22)
  1. AMPICILLIN AND SULBACTAM [Suspect]
     Indication: INFECTION PROPHYLAXIS
     Dosage: 1.5 G, 3X/DAY
     Route: 042
     Dates: start: 20070531, end: 20070601
  2. AMPICILLIN AND SULBACTAM [Suspect]
     Dosage: 2 DF, 2X/DAY
     Route: 048
     Dates: start: 20070602
  3. AMLODIPINE BESYLATE [Suspect]
     Indication: HYPERTENSION
     Dosage: 5 MG, 2X/DAY
     Route: 048
     Dates: start: 20061001
  4. PRAZOSIN [Suspect]
     Indication: HYPERTENSION
     Dosage: 5 MG, 2X/DAY
     Route: 048
     Dates: start: 20061001
  5. NEBIVOLOL HCL [Suspect]
     Dosage: 1 DF, 1X/DAY
     Route: 048
     Dates: start: 20050101
  6. RAMIPRIL [Suspect]
     Indication: HYPERTENSION
     Dosage: 2.5 MG, 1X/DAY
     Route: 048
     Dates: start: 20061002
  7. TORSEMIDE [Suspect]
     Indication: HYPERTENSION
     Dosage: 20 MG, 1-0-1/2
     Route: 048
     Dates: start: 20061001
  8. SIMVASTATIN [Suspect]
     Indication: HYPERCHOLESTEROLAEMIA
     Dosage: 5 MG, 1X/DAY
     Route: 048
     Dates: start: 20061001
  9. ACTRAPHANE HM [Suspect]
     Indication: DIABETES MELLITUS
     Dosage: 30/70 20-0-10
     Route: 058
     Dates: start: 20050101
  10. HAEMATOPAN [Suspect]
     Indication: MINERAL SUPPLEMENTATION
     Dosage: 1 DF, 1X/DAY
     Route: 048
     Dates: start: 20070528, end: 20070531
  11. CIPRO [Suspect]
     Indication: PROPHYLAXIS
     Dosage: 1 DF, 2X/DAY
     Route: 048
     Dates: start: 20070528, end: 20070531
  12. CLEXANE [Suspect]
     Indication: THROMBOSIS PROPHYLAXIS
     Dosage: 0.2 ML, 1X/DAY
     Route: 058
     Dates: start: 20070528, end: 20070531
  13. ACETYLCYSTEINE [Suspect]
     Indication: RESPIRATORY DISORDER
     Dosage: 200 MG, 3X/DAY
     Route: 048
     Dates: start: 20070528, end: 20070531
  14. MUCOSOLVAN [Suspect]
     Indication: RESPIRATORY DISORDER
     Dosage: 5 ML, 3X/DAY
     Dates: start: 20070528, end: 20070531
  15. COTRIM [Suspect]
     Indication: PROPHYLAXIS
     Dosage: 1 DF, 2X/DAY
     Route: 048
     Dates: start: 20070528, end: 20070531
  16. HEPARIN [Suspect]
     Indication: THROMBOSIS PROPHYLAXIS
     Dosage: 5000 IU, 2X/DAY
     Route: 058
     Dates: start: 20070531
  17. SODIUM CHLORIDE [Suspect]
     Indication: ELECTROLYTE SUBSTITUTION THERAPY
     Dosage: 1000 ML, UNK
     Route: 042
     Dates: start: 20070531
  18. FENISTIL [Suspect]
     Indication: ASTHMA
     Dosage: 1 DF, 1X/DAY
     Route: 042
     Dates: start: 20070601, end: 20070601
  19. SOLU-DECORTIN-H [Suspect]
     Indication: ASTHMA
     Dosage: 100 MG, UNK
     Route: 058
     Dates: start: 20070601, end: 20070601
  20. CPS PULVER ^GRY^ [Suspect]
     Indication: HYPERKALAEMIA
     Dosage: 1 DF, 1X/DAY
     Route: 048
     Dates: start: 20070602
  21. CANDIO-HERMAL [Suspect]
     Indication: CANDIDIASIS
     Dosage: 1 DF, 6X/DAY
     Route: 061
     Dates: start: 20070603
  22. ACETYLSALICYLIC ACID [Concomitant]
     Indication: THROMBOSIS PROPHYLAXIS
     Dosage: 100 MG, 1X/DAY
     Route: 048
     Dates: start: 20050101, end: 20070521

REACTIONS (1)
  - STEVENS-JOHNSON SYNDROME [None]
